FAERS Safety Report 26153860 (Version 2)
Quarter: 2025Q4

REPORT INFORMATION
  Report Type: Spontaneous
  Country: JP (occurrence: JP)
  Receive Date: 20251214
  Receipt Date: 20251222
  Transmission Date: 20260117
  Serious: Yes (Life-Threatening, Other)
  Sender: BAXTER
  Company Number: JP-BAXTERJP-2025BAX025130AA

PATIENT
  Age: 18 Year
  Sex: Male
  Weight: 98 kg

DRUGS (4)
  1. SUPRANE [Suspect]
     Active Substance: DESFLURANE
     Indication: Maintenance of anaesthesia
     Dosage: UNK
     Route: 065
  2. REMIFENTANIL [Suspect]
     Active Substance: REMIFENTANIL
     Indication: Maintenance of anaesthesia
     Dosage: UNK
     Route: 065
  3. SEVOFLURANE [Suspect]
     Active Substance: SEVOFLURANE
     Indication: Induction of anaesthesia
     Dosage: MASK INDUCTION
  4. ROCURONIUM BROMIDE [Suspect]
     Active Substance: ROCURONIUM BROMIDE
     Indication: Endotracheal intubation
     Dosage: NASOTRACHEAL INTUBATION
     Route: 045

REACTIONS (3)
  - Depressed level of consciousness [Recovered/Resolved]
  - Clonic convulsion [Recovered/Resolved]
  - Oxygen saturation decreased [Recovered/Resolved]
